FAERS Safety Report 18547122 (Version 1)
Quarter: 2020Q4

REPORT INFORMATION
  Report Type: Spontaneous
  Country: SE (occurrence: SE)
  Receive Date: 20201125
  Receipt Date: 20201125
  Transmission Date: 20210114
  Serious: Yes (Other)
  Sender: FDA-Public Use
  Company Number: SE-ELI_LILLY_AND_COMPANY-SE202011006987

PATIENT
  Age: 76 Year
  Sex: Female

DRUGS (1)
  1. DULOXETINE HYDROCHLORIDE. [Suspect]
     Active Substance: DULOXETINE HYDROCHLORIDE
     Indication: PRODUCT USED FOR UNKNOWN INDICATION
     Dosage: 30 MG, DAILY
     Route: 065
     Dates: end: 202008

REACTIONS (3)
  - Balance disorder [Recovered/Resolved]
  - Sluggishness [Recovered/Resolved]
  - Fumbling [Recovered/Resolved]

NARRATIVE: CASE EVENT DATE: 2020
